FAERS Safety Report 13535719 (Version 3)
Quarter: 2018Q1

REPORT INFORMATION
  Report Type: Spontaneous
  Country: CH (occurrence: CH)
  Receive Date: 20170511
  Receipt Date: 20180326
  Transmission Date: 20180508
  Serious: Yes (Hospitalization, Other)
  Sender: FDA-Public Use
  Company Number: CH-PFIZER INC-2017195993

PATIENT
  Age: 10 Year
  Sex: Female
  Weight: 50 kg

DRUGS (8)
  1. CAPECITABINE. [Suspect]
     Active Substance: CAPECITABINE
     Dosage: 1000 MG (2 TABLETS), SINGLE
     Route: 048
     Dates: start: 20170419, end: 20170419
  2. OXYNORM [Suspect]
     Active Substance: OXYCODONE HYDROCHLORIDE
     Dosage: 40 MG (6 TABLETS), SINGLE
     Route: 048
     Dates: start: 20170419, end: 20170419
  3. RELPAX [Suspect]
     Active Substance: ELETRIPTAN HYDROBROMIDE
     Dosage: UNK
     Route: 048
     Dates: start: 20170419, end: 20170419
  4. OXAZEPAM. [Suspect]
     Active Substance: OXAZEPAM
     Dosage: UNK
     Route: 048
     Dates: start: 20170419, end: 20170419
  5. TEMESTA (LORAZEPAM) [Suspect]
     Active Substance: LORAZEPAM
     Dosage: 1 MG, UNK
     Route: 048
     Dates: start: 20170419, end: 20170419
  6. XANAX [Suspect]
     Active Substance: ALPRAZOLAM
     Dosage: 0.5 MG - 1 MG
     Route: 048
     Dates: start: 20170419, end: 20170419
  7. PRIMPERAN [Suspect]
     Active Substance: METOCLOPRAMIDE HYDROCHLORIDE
     Dosage: 10 MG, UNK
     Route: 048
     Dates: start: 20170419, end: 20170419
  8. XARELTO [Suspect]
     Active Substance: RIVAROXABAN
     Dosage: UNK
     Route: 048
     Dates: start: 20170419, end: 20170419

REACTIONS (10)
  - Suicide attempt [Unknown]
  - Incoherent [Recovering/Resolving]
  - Intentional overdose [Recovering/Resolving]
  - Electrocardiogram QT prolonged [Recovering/Resolving]
  - Vomiting [Recovering/Resolving]
  - Rhabdomyolysis [Recovering/Resolving]
  - Miosis [Recovering/Resolving]
  - Paraesthesia [Recovering/Resolving]
  - Consciousness fluctuating [Recovering/Resolving]
  - Acidosis [Recovered/Resolved]

NARRATIVE: CASE EVENT DATE: 20170419
